FAERS Safety Report 6551185-2 (Version None)
Quarter: 2010Q1

REPORT INFORMATION
  Report Type: 
  Country: None (occurrence: None)
  Receive Date: 20100121
  Receipt Date: 20100113
  Transmission Date: 20100710
  Serious: Yes (Life-Threatening)
  Sender: FDA-Public Use
  Company Number: 2009JP006335

PATIENT
  Age: 72 Year
  Sex: Male

DRUGS (10)
  1. VESICARE [Suspect]
     Indication: NOCTURIA
     Dosage: 5 MG,  /D, ORAL
     Route: 048
     Dates: start: 20090918, end: 20091001
  2. VESICARE [Suspect]
     Indication: NOCTURIA
     Dosage: 5 MG,  /D, ORAL
     Route: 048
     Dates: start: 20091001, end: 20091001
  3. UROTAILON (FLAVOXATE HYDROCHLORIDE) TABLET, 200MG [Suspect]
     Dosage: 400 MG,/D, ORAL
     Route: 048
     Dates: start: 20090918, end: 20091001
  4. UROTAILON (FLAVOXATE HYDROCHLORIDE) TABLET, 200MG [Suspect]
     Dosage: 400 MG,/D, ORAL
     Route: 048
     Dates: start: 20091001, end: 20091001
  5. BROTIZOLAM (BROTIZOLAM) ORODISPERSIBLE CR TABLET [Concomitant]
  6. DEPAS (ETIZOLAM) [Concomitant]
  7. MYSLEE (ZOLPIDEM) TABLET [Concomitant]
  8. RHYTHMY (RILMAZAFONE HYDROCHLORIDE) [Concomitant]
  9. LEVEMIR (INSULIN DETEMIR) INJECTION [Concomitant]
  10. NOVORAPID (INSULIN ASPART) INJECTION [Concomitant]

REACTIONS (1)
  - HYPOGLYCAEMIA [None]
